FAERS Safety Report 8896496 (Version 1)
Quarter: 2012Q4

REPORT INFORMATION
  Report Type: Spontaneous
  Country: US (occurrence: None)
  Receive Date: 20121107
  Receipt Date: 20121107
  Transmission Date: 20130627
  Serious: No
  Sender: FDA-Public Use
  Company Number: None

PATIENT
  Sex: Male
  Weight: 98.43 kg

DRUGS (2)
  1. BYDUREON [Suspect]
     Indication: DIABETES
     Route: 058
     Dates: start: 20120720, end: 20120920
  2. BYDUREON [Suspect]
     Indication: DIABETES

REACTIONS (1)
  - Pancreatitis acute [None]
